FAERS Safety Report 7528162-8 (Version None)
Quarter: 2011Q2

REPORT INFORMATION
  Report Type: 
  Country: None (occurrence: None)
  Receive Date: 20110607
  Receipt Date: 20110107
  Transmission Date: 20111010
  Serious: No
  Sender: FDA-Public Use
  Company Number: US-ASTRAZENECA-2011SE01227

PATIENT
  Age: 10 Year
  Sex: Male
  Weight: 36.3 kg

DRUGS (2)
  1. PRILOSEC [Suspect]
     Indication: GASTROOESOPHAGEAL REFLUX DISEASE
     Route: 048
     Dates: start: 20091001
  2. PREVACID [Suspect]
     Indication: GASTROOESOPHAGEAL REFLUX DISEASE
     Route: 048
     Dates: start: 20091001

REACTIONS (4)
  - OFF LABEL USE [None]
  - INTENTIONAL DRUG MISUSE [None]
  - OVERDOSE [None]
  - COUGH [None]
